FAERS Safety Report 4684720-X (Version None)
Quarter: 2005Q2

REPORT INFORMATION
  Report Type: 
  Country: None (occurrence: None)
  Receive Date: 20050531
  Receipt Date: 20050426
  Transmission Date: 20051028
  Serious: Yes (Other)
  Sender: FDA-Public Use
  Company Number: USA050289952

PATIENT
  Age: 67 Year
  Sex: Female
  Weight: 86 kg

DRUGS (1)
  1. ZYPREXA [Suspect]
     Indication: SCHIZOPHRENIA
     Dosage: 30 MG IN THE EVENING
     Dates: start: 20000101

REACTIONS (6)
  - ALOPECIA [None]
  - AMNESIA [None]
  - HEADACHE [None]
  - PAIN [None]
  - PRESCRIBED OVERDOSE [None]
  - WEIGHT INCREASED [None]
